FAERS Safety Report 4923052-9 (Version None)
Quarter: 2006Q1

REPORT INFORMATION
  Report Type: 
  Country: None (occurrence: None)
  Receive Date: 20060125
  Receipt Date: 20050125
  Transmission Date: 20060701
  Serious: Yes (Other)
  Sender: FDA-Public Use
  Company Number: HQWYE908827JAN05

PATIENT
  Sex: Male

DRUGS (6)
  1. CORDARONE [Suspect]
     Indication: ATRIAL FIBRILLATION
     Dosage: SEE IMAGE
     Route: 048
     Dates: end: 20050101
  2. CORDARONE [Suspect]
     Indication: ATRIAL FIBRILLATION
     Dosage: SEE IMAGE
     Route: 048
     Dates: start: 20050101, end: 20050119
  3. CORDARONE [Suspect]
     Indication: ATRIAL FIBRILLATION
     Dosage: SEE IMAGE
     Route: 048
     Dates: start: 20050120
  4. . [Concomitant]
  5. COREG [Concomitant]
  6. WARFARIN SODIUM [Concomitant]

REACTIONS (4)
  - CARDIOMYOPATHY [None]
  - DRUG EFFECT DECREASED [None]
  - MUSCLE TWITCHING [None]
  - TACHYCARDIA [None]
